FAERS Safety Report 4942725-5 (Version None)
Quarter: 2006Q1

REPORT INFORMATION
  Report Type: 
  Country: None (occurrence: None)
  Receive Date: 20060314
  Receipt Date: 20060202
  Transmission Date: 20060701
  Serious: Yes (Other)
  Sender: FDA-Public Use
  Company Number: PHNU2006DE00760

PATIENT
  Age: 54 Year
  Sex: Female

DRUGS (11)
  1. ZOMETA [Suspect]
     Indication: METASTASES TO BONE
     Dosage: 4 MG, QMO
     Route: 042
     Dates: start: 20010101
  2. OMEPRAZOLE [Concomitant]
     Dosage: 20 MG, QD
     Route: 065
  3. DIGIMERCK [Concomitant]
     Indication: CARDIAC FAILURE
     Dosage: 0.1 MG, QD
     Route: 065
  4. CONCOR [Concomitant]
     Indication: HYPERTENSION
     Dosage: 1.25 MG, QD
     Route: 048
  5. BLOPRESS [Concomitant]
     Indication: HYPERTENSION
     Dosage: 16 MG, QD
     Route: 048
  6. TAMOX [Concomitant]
     Indication: BREAST CANCER
     Dosage: 20 MG, QD
     Route: 048
  7. SYNAREL [Concomitant]
     Indication: BREAST CANCER
     Dosage: 2 DF, QD
     Route: 045
  8. MARCUMAR [Concomitant]
     Route: 048
  9. NOVORAPID [Concomitant]
     Indication: DIABETES MELLITUS
     Dosage: 5 - 5 - 5 - 30/DAY
  10. SEREVENT [Concomitant]
     Indication: CHRONIC OBSTRUCTIVE PULMONARY DISEASE
     Dosage: 2 DF, QD
  11. DHC [Concomitant]
     Dosage: 45 MG, QD
     Route: 048

REACTIONS (5)
  - BONE DEBRIDEMENT [None]
  - OSTEONECROSIS [None]
  - PRIMARY SEQUESTRUM [None]
  - SEQUESTRECTOMY [None]
  - TOOTH EXTRACTION [None]
